FAERS Safety Report 11539011 (Version 1)
Quarter: 2015Q3

REPORT INFORMATION
  Report Type: Spontaneous
  Country: CI (occurrence: CI)
  Receive Date: 20150923
  Receipt Date: 20150923
  Transmission Date: 20151125
  Serious: Yes (Death)
  Sender: FDA-Public Use
  Company Number: CI-ROCHE-1637404

PATIENT
  Age: 48 Year
  Sex: Female

DRUGS (6)
  1. 5-FLUOROURACIL [Concomitant]
     Active Substance: FLUOROURACIL
     Route: 040
     Dates: start: 2012, end: 2013
  2. HERCEPTIN [Suspect]
     Active Substance: TRASTUZUMAB
     Indication: HER-2 POSITIVE BREAST CANCER
     Route: 040
     Dates: start: 2012, end: 2013
  3. CYCLOPHOSPHAMIDE. [Concomitant]
     Active Substance: CYCLOPHOSPHAMIDE
     Route: 040
     Dates: start: 2012, end: 2013
  4. XELODA [Concomitant]
     Active Substance: CAPECITABINE
     Indication: METASTASES TO LIVER
     Route: 048
     Dates: start: 2013, end: 2015
  5. TAXOL [Concomitant]
     Active Substance: PACLITAXEL
     Indication: METASTASES TO LIVER
     Route: 042
  6. EPIRUBICIN [Concomitant]
     Active Substance: EPIRUBICIN
     Route: 040
     Dates: start: 2012, end: 2013

REACTIONS (2)
  - Brain neoplasm [Fatal]
  - Metastatic neoplasm [Fatal]

NARRATIVE: CASE EVENT DATE: 2012
